FAERS Safety Report 7743140-1 (Version None)
Quarter: 2011Q3

REPORT INFORMATION
  Report Type: 
  Country: None (occurrence: None)
  Receive Date: 20110912
  Receipt Date: 20110902
  Transmission Date: 20111222
  Serious: Yes (Hospitalization)
  Sender: FDA-Public Use
  Company Number: IT-ROCHE-800445

PATIENT
  Sex: Male

DRUGS (3)
  1. GEMCITABINE [Concomitant]
  2. AVASTIN [Suspect]
     Dosage: FREQUENCY: CYCLIC
     Route: 065
     Dates: start: 20110603, end: 20110603
  3. CARBOPLATIN [Concomitant]

REACTIONS (1)
  - ATRIAL FIBRILLATION [None]
